FAERS Safety Report 11200133 (Version 4)
Quarter: 2016Q1

REPORT INFORMATION
  Report Type: Spontaneous
  Country: US (occurrence: US)
  Receive Date: 20150618
  Receipt Date: 20160125
  Transmission Date: 20160525
  Serious: No
  Sender: FDA-Public Use
  Company Number: US-TEVA-571643USA

PATIENT
  Sex: Female

DRUGS (1)
  1. COPAXONE [Suspect]
     Active Substance: GLATIRAMER ACETATE
     Indication: RELAPSING-REMITTING MULTIPLE SCLEROSIS
     Route: 065
     Dates: start: 20150427

REACTIONS (5)
  - Pyrexia [Unknown]
  - Injection site pain [Unknown]
  - Injection site urticaria [Unknown]
  - Injection site pruritus [Recovered/Resolved]
  - Chills [Unknown]

NARRATIVE: CASE EVENT DATE: 2015
